FAERS Safety Report 18849001 (Version 2)
Quarter: 2021Q1

REPORT INFORMATION
  Report Type: Spontaneous
  Country: PL (occurrence: PL)
  Receive Date: 20210204
  Receipt Date: 20210204
  Transmission Date: 20210419
  Serious: No
  Sender: FDA-Public Use
  Company Number: PL-PFIZER INC-2021048867

PATIENT
  Age: 60 Year
  Sex: Male

DRUGS (2)
  1. METHYLPREDNISOLONE. [Suspect]
     Active Substance: METHYLPREDNISOLONE
     Indication: EOSINOPHILIC FASCIITIS
     Dosage: 48 MG/D (WITH DOSE REDUCTION OF 4 MG WEEKLY UNTIL 16 MG)
  2. METHOTREXATE. [Suspect]
     Active Substance: METHOTREXATE
     Indication: EOSINOPHILIC FASCIITIS
     Dosage: 15 MG WEEKLY

REACTIONS (1)
  - Off label use [Unknown]
